FAERS Safety Report 4268585-6 (Version None)
Quarter: 2004Q1

REPORT INFORMATION
  Report Type: 
  Country: None (occurrence: None)
  Receive Date: 20040109
  Receipt Date: 20040109
  Transmission Date: 20041129
  Serious: Yes (Other)
  Sender: FDA-Public Use
  Company Number: None

PATIENT
  Age: 32 Year
  Sex: Female

DRUGS (1)
  1. GENERIC PAROXETINE PAXIL 20MG QD [Suspect]
     Indication: ANXIETY DISORDER
     Dosage: 20MG PO QD
     Route: 048

REACTIONS (3)
  - ANXIETY [None]
  - CRYING [None]
  - PHARMACEUTICAL PRODUCT COMPLAINT [None]
